FAERS Safety Report 8290369-2 (Version None)
Quarter: 2012Q2

REPORT INFORMATION
  Report Type: 
  Country: None (occurrence: None)
  Receive Date: 20120413
  Receipt Date: 20120413
  Transmission Date: 20120825
  Serious: No
  Sender: FDA-Public Use
  Company Number: None

PATIENT
  Sex: Female
  Weight: 87.5442 kg

DRUGS (1)
  1. DURAGESIC-100 [Suspect]
     Indication: BACK PAIN
     Dosage: 80 MCG EVERY 3 DAYS PATCH DURAGESIC BRAND NAME

REACTIONS (3)
  - PRODUCT ADHESION ISSUE [None]
  - DERMATITIS CONTACT [None]
  - HYPERHIDROSIS [None]
